FAERS Safety Report 8829869 (Version 2)
Quarter: 2013Q1

REPORT INFORMATION
  Report Type: Spontaneous
  Country: US (occurrence: None)
  Receive Date: 20121004
  Receipt Date: 20121113
  Transmission Date: 20140127
  Serious: Yes (Life-Threatening, Other)
  Sender: FDA-Public Use
  Company Number: 2012P1058011

PATIENT
  Age: 57 Year
  Sex: Male
  Weight: 113.4 kg

DRUGS (12)
  1. FENTANYL PATCH [Suspect]
     Indication: HEADACHE
     Dosage: 1 PATCH; Q2D; TDER
     Route: 062
     Dates: start: 20120521, end: 20120601
  2. FENTANYL PATCH [Suspect]
     Indication: PINEAL GLAND CYST
     Dosage: 1 PATCH; Q2D; TDER
     Route: 062
     Dates: start: 20120521, end: 20120601
  3. CITALOPRAM [Suspect]
  4. BYSTOLIC [Suspect]
  5. DIOVAN [Concomitant]
  6. LOVAZA [Suspect]
  7. SIMVASTATIN [Suspect]
  8. TRILIPIX [Suspect]
  9. VICODIN [Suspect]
  10. MELATONIN [Suspect]
  11. IBUPROFEN [Suspect]
  12. PROMETHAZINE [Suspect]

REACTIONS (21)
  - Drug withdrawal syndrome [None]
  - Insomnia [None]
  - Abdominal pain upper [None]
  - Chills [None]
  - Hyperhidrosis [None]
  - Tremor [None]
  - Decreased appetite [None]
  - Dysgeusia [None]
  - Constipation [None]
  - Hallucination [None]
  - Nausea [None]
  - Blindness unilateral [None]
  - Morbid thoughts [None]
  - Weight decreased [None]
  - Headache [None]
  - Pain [None]
  - Restless legs syndrome [None]
  - Panic attack [None]
  - Hyperacusis [None]
  - Photophobia [None]
  - Hyperaesthesia [None]
